APPROVED DRUG PRODUCT: METHYLPHENIDATE HYDROCHLORIDE
Active Ingredient: METHYLPHENIDATE HYDROCHLORIDE
Strength: 2.5MG
Dosage Form/Route: TABLET, CHEWABLE;ORAL
Application: A210354 | Product #001 | TE Code: AB
Applicant: ASCENT PHARMACEUTICALS INC
Approved: Dec 29, 2017 | RLD: No | RS: No | Type: RX